FAERS Safety Report 7465105-X (Version None)
Quarter: 2011Q2

REPORT INFORMATION
  Report Type: 
  Country: None (occurrence: None)
  Receive Date: 20110505
  Receipt Date: 20110505
  Transmission Date: 20111010
  Serious: Yes (Life-Threatening, Disabling)
  Sender: FDA-Public Use
  Company Number: None

PATIENT
  Sex: Female
  Weight: 62.5964 kg

DRUGS (2)
  1. METOPROLOL TARTRATE [Suspect]
     Indication: HYPERTENSION
     Dosage: 50 MG TWO. TIME 50 MG DAY
     Dates: start: 20110207
  2. METOPROLOL TARTRATE [Suspect]
     Indication: HYPERTENSION
     Dosage: 50 MG TWO. TIME 50 MG DAY
     Dates: start: 20110206

REACTIONS (14)
  - EYE MOVEMENT DISORDER [None]
  - HEADACHE [None]
  - COMPLETED SUICIDE [None]
  - DIZZINESS [None]
  - DECREASED APPETITE [None]
  - DYSPNOEA [None]
  - BLOOD PRESSURE INCREASED [None]
  - VITREOUS FLOATERS [None]
  - LACRIMATION INCREASED [None]
  - ASTHENIA [None]
  - TINNITUS [None]
  - OCULAR ICTERUS [None]
  - HEART RATE INCREASED [None]
  - SUICIDAL IDEATION [None]
